FAERS Safety Report 11689528 (Version 3)
Quarter: 2016Q3

REPORT INFORMATION
  Report Type: Spontaneous
  Country: US (occurrence: US)
  Receive Date: 20151102
  Receipt Date: 20160928
  Transmission Date: 20161109
  Serious: Yes (Hospitalization)
  Sender: FDA-Public Use
  Company Number: PHEH2015US021824

PATIENT
  Age: 16 Year
  Sex: Female

DRUGS (2)
  1. CICLOSPORIN A [Suspect]
     Active Substance: CYCLOSPORINE
     Indication: APLASTIC ANAEMIA
     Route: 065
  2. PROMACTA [Suspect]
     Active Substance: ELTROMBOPAG OLAMINE
     Indication: APLASTIC ANAEMIA
     Dosage: 150 MG, UNK
     Route: 048
     Dates: start: 20150925, end: 20151022

REACTIONS (12)
  - Malaise [Unknown]
  - Drug administered to patient of inappropriate age [Unknown]
  - Rash maculo-papular [Recovered/Resolved]
  - Lymphocytic infiltration [Unknown]
  - Pyrexia [Unknown]
  - Acanthosis [Unknown]
  - Swelling face [Unknown]
  - Eczema [Unknown]
  - Glossodynia [Unknown]
  - Pruritus [Unknown]
  - Oral pain [Unknown]
  - Oropharyngeal pain [Unknown]

NARRATIVE: CASE EVENT DATE: 20151022
